FAERS Safety Report 25405686 (Version 2)
Quarter: 2025Q3

REPORT INFORMATION
  Report Type: Spontaneous
  Country: US (occurrence: US)
  Receive Date: 20250606
  Receipt Date: 20250706
  Transmission Date: 20251020
  Serious: No
  Sender: DIFGEN PHARMACEUTICALS LLC
  Company Number: US-Difgen-012005

PATIENT
  Sex: Female

DRUGS (1)
  1. NICOTINE [Suspect]
     Active Substance: NICOTINE
     Indication: Product used for unknown indication
     Route: 062

REACTIONS (12)
  - Application site discomfort [Not Recovered/Not Resolved]
  - Application site laceration [Not Recovered/Not Resolved]
  - Application site wound [Not Recovered/Not Resolved]
  - Application site scab [Not Recovered/Not Resolved]
  - Product quality issue [Unknown]
  - Application site pain [Not Recovered/Not Resolved]
  - Impaired healing [Not Recovered/Not Resolved]
  - Product odour abnormal [Unknown]
  - Application site scar [Not Recovered/Not Resolved]
  - Device leakage [Unknown]
  - Application site burn [Not Recovered/Not Resolved]
  - Application site discolouration [Not Recovered/Not Resolved]
